FAERS Safety Report 6077166-3 (Version None)
Quarter: 2009Q1

REPORT INFORMATION
  Report Type: 
  Country: None (occurrence: None)
  Receive Date: 20090213
  Receipt Date: 20090204
  Transmission Date: 20090719
  Serious: Yes (Other)
  Sender: FDA-Public Use
  Company Number: CA-JNJFOC-20090201982

PATIENT
  Sex: Female
  Weight: 133.5 kg

DRUGS (17)
  1. REMICADE [Suspect]
     Indication: RHEUMATOID ARTHRITIS
     Route: 042
  2. NEXIUM [Concomitant]
     Indication: ABDOMINAL PAIN UPPER
     Route: 048
  3. NAPROX [Concomitant]
     Indication: RHEUMATOID ARTHRITIS
     Route: 048
  4. AVALIDE [Concomitant]
     Indication: DIABETES MELLITUS
     Route: 048
  5. ACTOS [Concomitant]
     Indication: DIABETES MELLITUS
     Route: 048
  6. METFORMIN HCL [Concomitant]
     Indication: DIABETES MELLITUS
     Route: 048
  7. CRESTOR [Concomitant]
     Indication: BLOOD CHOLESTEROL
     Route: 048
  8. DILAUDID [Concomitant]
     Indication: RHEUMATOID ARTHRITIS
     Route: 048
  9. ASAPHEN [Concomitant]
     Indication: PROPHYLAXIS
     Route: 048
  10. CODEINE CONTIN [Concomitant]
     Indication: RHEUMATOID ARTHRITIS
     Route: 048
  11. FOLIC ACID [Concomitant]
     Indication: PROPHYLAXIS
     Route: 048
  12. METHOTREXATE [Concomitant]
     Indication: RHEUMATOID ARTHRITIS
     Route: 048
  13. RIFAMPIN [Concomitant]
     Route: 048
  14. RIFAMPIN [Concomitant]
     Route: 048
  15. RIFAMPIN [Concomitant]
     Indication: TUBERCULIN TEST POSITIVE
     Route: 048
  16. STEMETIL [Concomitant]
     Indication: NAUSEA
     Route: 048
  17. FLEXERIL [Concomitant]
     Indication: BACK PAIN
     Route: 048

REACTIONS (3)
  - ABASIA [None]
  - ABDOMINAL MASS [None]
  - PAIN IN EXTREMITY [None]
